FAERS Safety Report 13711402 (Version 1)
Quarter: 2017Q3

REPORT INFORMATION
  Report Type: Spontaneous
  Country: US (occurrence: US)
  Receive Date: 20170703
  Receipt Date: 20170703
  Transmission Date: 20171127
  Serious: No
  Sender: FDA-Public Use
  Company Number: US-BAYER-2017-126957

PATIENT
  Sex: Female

DRUGS (1)
  1. CLARITIN [Suspect]
     Active Substance: LORATADINE
     Indication: OTORRHOEA
     Dosage: 1 DF, UNK
     Route: 061

REACTIONS (4)
  - Product use in unapproved indication [Unknown]
  - Poor quality drug administered [Not Recovered/Not Resolved]
  - Diarrhoea [Unknown]
  - Product physical consistency issue [None]

NARRATIVE: CASE EVENT DATE: 20170630
